FAERS Safety Report 12347077 (Version 2)
Quarter: 2016Q2

REPORT INFORMATION
  Report Type: Report from Study
  Country: ZM (occurrence: ZM)
  Receive Date: 20160509
  Receipt Date: 20160511
  Transmission Date: 20160815
  Serious: Yes (Death)
  Sender: FDA-Public Use
  Company Number: PHHY2016ZM062778

PATIENT
  Sex: Male

DRUGS (1)
  1. GLIVEC [Suspect]
     Active Substance: IMATINIB MESYLATE
     Indication: CHRONIC MYELOID LEUKAEMIA
     Dosage: 400 MG, UNK
     Route: 065

REACTIONS (5)
  - Chronic myeloid leukaemia [Fatal]
  - Thrombocytopenia [Fatal]
  - Haemorrhage [Fatal]
  - Lymphoma [Fatal]
  - Second primary malignancy [Fatal]
